FAERS Safety Report 10756868 (Version 1)
Quarter: 2015Q1

REPORT INFORMATION
  Report Type: Spontaneous
  Country: US (occurrence: US)
  Receive Date: 20150203
  Receipt Date: 20150203
  Transmission Date: 20150721
  Serious: Yes (Other)
  Sender: FDA-Public Use
  Company Number: PHHY2015US010289

PATIENT
  Age: 33 Year
  Sex: Female

DRUGS (1)
  1. PHENTERMINE [Suspect]
     Active Substance: PHENTERMINE
     Indication: OBESITY
     Route: 065

REACTIONS (12)
  - Chest pain [Unknown]
  - Areflexia [Unknown]
  - Sensory loss [Unknown]
  - Neck pain [Unknown]
  - Urinary incontinence [Unknown]
  - Faecal incontinence [Unknown]
  - Muscular weakness [Unknown]
  - Hypotonia [Unknown]
  - Spinal cord infarction [Unknown]
  - Speech disorder [Unknown]
  - Quadriplegia [Unknown]
  - Hypoaesthesia [Unknown]
